FAERS Safety Report 12924284 (Version 3)
Quarter: 2017Q1

REPORT INFORMATION
  Report Type: Spontaneous
  Country: JP (occurrence: JP)
  Receive Date: 20161108
  Receipt Date: 20170120
  Transmission Date: 20170428
  Serious: Yes (Hospitalization)
  Sender: FDA-Public Use
  Company Number: JP-CELGENEUS-JPN-2016107375

PATIENT
  Age: 69 Year
  Sex: Male

DRUGS (4)
  1. LENADEX [Suspect]
     Active Substance: DEXAMETHASONE ACETATE
     Indication: PLASMA CELL MYELOMA
     Route: 048
     Dates: start: 20160822, end: 20160926
  2. ALENDRONATE [Suspect]
     Active Substance: ALENDRONATE SODIUM
     Indication: PRODUCT USED FOR UNKNOWN INDICATION
     Route: 065
     Dates: end: 2016
  3. POMALYST [Suspect]
     Active Substance: POMALIDOMIDE
     Indication: PLASMA CELL MYELOMA
     Dosage: 3 MILLIGRAM
     Route: 048
     Dates: start: 20160822, end: 20160926
  4. POMALYST [Suspect]
     Active Substance: POMALIDOMIDE
     Route: 048
     Dates: start: 20161107

REACTIONS (2)
  - Osteonecrosis of jaw [Recovering/Resolving]
  - Herpes zoster [Recovering/Resolving]

NARRATIVE: CASE EVENT DATE: 201609
